FAERS Safety Report 4377670-X (Version None)
Quarter: 2004Q2

REPORT INFORMATION
  Report Type: 
  Country: None (occurrence: None)
  Receive Date: 20040615
  Receipt Date: 20040525
  Transmission Date: 20050107
  Serious: Yes (Other)
  Sender: FDA-Public Use
  Company Number: FR-ROCHE-369567

PATIENT
  Age: 55 Year
  Sex: Female

DRUGS (3)
  1. LARIAM [Suspect]
     Indication: MALARIA PROPHYLAXIS
     Route: 048
  2. RISPERDAL [Concomitant]
     Indication: TIC
     Route: 048
  3. OMEPRAZOLE [Concomitant]
     Indication: OESOPHAGITIS
     Route: 048

REACTIONS (6)
  - CEREBRAL VENTRICLE DILATATION [None]
  - DEHYDRATION [None]
  - DISORIENTATION [None]
  - HEAT STROKE [None]
  - NORMAL PRESSURE HYDROCEPHALUS [None]
  - TREMOR [None]
